FAERS Safety Report 8037283-5 (Version None)
Quarter: 2012Q1

REPORT INFORMATION
  Report Type: 
  Country: None (occurrence: None)
  Receive Date: 20120105
  Receipt Date: 20111227
  Transmission Date: 20120608
  Serious: Yes (Hospitalization)
  Sender: FDA-Public Use
  Company Number: 2011SP059996

PATIENT
  Age: 60 Year
  Sex: Female
  Weight: 65 kg

DRUGS (5)
  1. DIPROPHOS (BETAMETHASONE SODIUM PHOSPHATE / DIPROPIONATE / 00582101/ ) [Suspect]
     Indication: MYALGIA
     Dosage: 5 MG;QD;IM
     Route: 030
     Dates: start: 20111106, end: 20111106
  2. DIPROPHOS (BETAMETHASONE SODIUM PHOSPHATE / DIPROPIONATE / 00582101/ ) [Suspect]
     Indication: CERVICOBRACHIAL SYNDROME
     Dosage: 5 MG;QD;IM
     Route: 030
     Dates: start: 20111106, end: 20111106
  3. TETRAZEPAM [Concomitant]
  4. AMINOPHYLLINE [Concomitant]
  5. LETROX [Concomitant]

REACTIONS (1)
  - HYPERSENSITIVITY [None]
